FAERS Safety Report 6370047-7 (Version None)
Quarter: 2009Q3

REPORT INFORMATION
  Report Type: 
  Country: None (occurrence: None)
  Receive Date: 20090923
  Receipt Date: 20071221
  Transmission Date: 20100115
  Serious: Yes (Other)
  Sender: FDA-Public Use
  Company Number: US-ASTRAZENECA-2006UW21269

PATIENT
  Sex: Male
  Weight: 103.4 kg

DRUGS (28)
  1. SEROQUEL [Suspect]
     Indication: DEPRESSION
     Route: 048
     Dates: start: 20040901
  2. SEROQUEL [Suspect]
     Indication: BIPOLAR DISORDER
     Route: 048
     Dates: start: 20040901
  3. SEROQUEL [Suspect]
     Route: 048
     Dates: start: 20050101
  4. SEROQUEL [Suspect]
     Route: 048
     Dates: start: 20050101
  5. TRIAMCINOLONE [Concomitant]
     Route: 065
  6. TRAZODONE [Concomitant]
     Dosage: 10 MG-50 MG
     Route: 048
  7. PROZAC [Concomitant]
     Route: 048
  8. FLONASE 0.05% [Concomitant]
     Route: 065
  9. RISPERDAL [Concomitant]
     Route: 048
  10. NAPROXEN [Concomitant]
     Route: 048
  11. SULFATRIM [Concomitant]
     Route: 065
  12. ZYPREXA [Concomitant]
     Route: 048
  13. POLYSPORIN OINTMENT [Concomitant]
     Route: 065
  14. ZOCOR [Concomitant]
     Route: 048
  15. PRAVACHOL [Concomitant]
     Route: 048
  16. ABILIFY [Concomitant]
     Route: 048
  17. LIPITOR [Concomitant]
     Route: 048
  18. INDOMETHACIN [Concomitant]
     Route: 065
  19. NYSTATIN [Concomitant]
     Route: 065
  20. ALLEGRA D 24 HOUR [Concomitant]
     Route: 065
  21. PROTONIX [Concomitant]
     Route: 048
  22. LORATADINE [Concomitant]
     Route: 048
  23. LYRICA [Concomitant]
     Route: 048
  24. CYMBALTA [Concomitant]
     Route: 048
  25. TRAMADOL HYDROCHLORIDE [Concomitant]
     Route: 065
  26. PROPRANOLOL [Concomitant]
     Route: 065
  27. AMITRIPTYLINE [Concomitant]
     Route: 065
  28. BENZOTROPINE MESYL [Concomitant]
     Route: 065

REACTIONS (2)
  - DIABETES MELLITUS [None]
  - DIABETIC COMA [None]
